FAERS Safety Report 18209490 (Version 1)
Quarter: 2020Q3

REPORT INFORMATION
  Report Type: Report from Study
  Country: EG (occurrence: EG)
  Receive Date: 20200828
  Receipt Date: 20200828
  Transmission Date: 20201103
  Serious: Yes (Other)
  Sender: FDA-Public Use
  Company Number: NVSC2020EG236961

PATIENT
  Age: 8 Year
  Sex: Female
  Weight: 40 kg

DRUGS (2)
  1. ZOLADEX [Concomitant]
     Active Substance: GOSERELIN ACETATE
     Indication: PRODUCT USED FOR UNKNOWN INDICATION
     Dosage: 1 DF, Q3W
     Route: 065
     Dates: start: 20200808
  2. OMNITROPE [Suspect]
     Active Substance: SOMATROPIN
     Indication: PRECOCIOUS PUBERTY
     Dosage: 2 MG, QD
     Route: 058
     Dates: start: 20200810

REACTIONS (3)
  - Product use in unapproved indication [Not Recovered/Not Resolved]
  - Injection site haemorrhage [Not Recovered/Not Resolved]
  - Multiple use of single-use product [Not Recovered/Not Resolved]

NARRATIVE: CASE EVENT DATE: 20200810
